FAERS Safety Report 19977260 (Version 1)
Quarter: 2021Q4

REPORT INFORMATION
  Report Type: Spontaneous
  Country: US (occurrence: US)
  Receive Date: 20211021
  Receipt Date: 20211021
  Transmission Date: 20220303
  Serious: No
  Sender: FDA-Public Use
  Company Number: US-AMGEN-USASP2021161659

PATIENT
  Age: 52 Year
  Sex: Male

DRUGS (5)
  1. OTEZLA [Suspect]
     Active Substance: APREMILAST
     Indication: Psoriasis
     Dosage: UNK
     Route: 065
     Dates: start: 202101
  2. DULOXETINE [Concomitant]
     Active Substance: DULOXETINE
     Indication: Back injury
     Dosage: 1 DOSAGE FORM
  3. DULOXETINE [Concomitant]
     Active Substance: DULOXETINE
     Indication: Nerve injury
  4. TOPIRAMATE [Concomitant]
     Active Substance: TOPIRAMATE
     Indication: Back injury
     Dosage: 200 MILLIGRAM, BID
  5. TOPIRAMATE [Concomitant]
     Active Substance: TOPIRAMATE
     Indication: Nerve injury

REACTIONS (3)
  - Diarrhoea [Unknown]
  - Psoriasis [Unknown]
  - Depression [Unknown]

NARRATIVE: CASE EVENT DATE: 20210101
